FAERS Safety Report 20126368 (Version 1)
Quarter: 2021Q4

REPORT INFORMATION
  Report Type: Spontaneous
  Country: BR (occurrence: BR)
  Receive Date: 20211129
  Receipt Date: 20211129
  Transmission Date: 20220303
  Serious: Yes (Other)
  Sender: FDA-Public Use
  Company Number: BR-TAKEDA-2021TUS075409

PATIENT
  Age: 71 Year
  Sex: Male

DRUGS (5)
  1. ENTYVIO [Suspect]
     Active Substance: VEDOLIZUMAB
     Indication: Colitis ulcerative
     Dosage: 300 MILLIGRAM, Q4WEEKS
     Route: 042
  2. MESALAMINE [Suspect]
     Active Substance: MESALAMINE
     Indication: Colitis ulcerative
     Dosage: UNK UNK, QD
     Route: 065
  3. MESALAMINE [Suspect]
     Active Substance: MESALAMINE
     Dosage: 1 GRAM
     Route: 065
  4. AZATHIOPRINE [Concomitant]
     Active Substance: AZATHIOPRINE
     Dosage: 150 MILLIGRAM, QD
  5. PREDNISONE [Concomitant]
     Active Substance: PREDNISONE
     Dosage: 40 MILLIGRAM

REACTIONS (10)
  - Colitis ulcerative [Recovered/Resolved]
  - Cytomegalovirus colitis [Recovered/Resolved]
  - Lip neoplasm [Unknown]
  - Neck mass [Unknown]
  - Weight decreased [Recovered/Resolved]
  - Anaemia [Recovered/Resolved]
  - Quality of life decreased [Recovered/Resolved]
  - Weight gain poor [Recovered/Resolved]
  - Therapy partial responder [Unknown]
  - Fatigue [Unknown]
